FAERS Safety Report 5207366-3 (Version None)
Quarter: 2007Q1

REPORT INFORMATION
  Report Type: 
  Country: None (occurrence: None)
  Receive Date: 20070112
  Receipt Date: 20070101
  Transmission Date: 20070707
  Serious: Yes (Hospitalization, Other)
  Sender: FDA-Public Use
  Company Number: US-KINGPHARMUSA00001-K200700002

PATIENT

DRUGS (7)
  1. ALTACE [Suspect]
     Indication: HYPERTENSION
     Dosage: 5 MG, QD
     Route: 048
     Dates: start: 20060202, end: 20060721
  2. HYDROCHLOROTHIAZIDE [Suspect]
     Indication: HYPERTENSION
     Dosage: 25 MG, QD
     Route: 048
     Dates: start: 20060202, end: 20060721
  3. SEPTRA [Suspect]
     Indication: URINARY TRACT INFECTION
     Route: 048
     Dates: start: 20060701, end: 20060721
  4. ATENOLOLUM [Concomitant]
     Dosage: 50 MG, UNK
     Route: 048
  5. SIMVASTATIN [Concomitant]
     Dosage: 40 MG, UNK
     Route: 048
     Dates: start: 20060202
  6. CALCIUM CARBONATE [Concomitant]
     Dosage: 1250 MG, UNK
     Route: 048
  7. FOSAMAX [Concomitant]
     Dosage: 70 MG, UNK
     Route: 048

REACTIONS (2)
  - HYPOKALAEMIA [None]
  - HYPONATRAEMIA [None]
